FAERS Safety Report 8644039 (Version 2)
Quarter: 2012Q4

REPORT INFORMATION
  Report Type: 
  Country: KR (occurrence: KR)
  Receive Date: 20120629
  Receipt Date: 20121003
  Transmission Date: 20130627
  Serious: Yes (Other)
  Sender: FDA-Public Use
  Company Number: KR-GLAXOSMITHKLINE-B0811205A

PATIENT
  Age: 74 Year
  Sex: Female

DRUGS (1)
  1. VOTRIENT [Suspect]
     Indication: PRODUCT USED FOR UNKNOWN INDICATION
     Dosage: 800MG per day
     Route: 065
     Dates: start: 20120419

REACTIONS (2)
  - Liver function test abnormal [Unknown]
  - Neutrophil count decreased [Recovered/Resolved]
